FAERS Safety Report 7076528-5 (Version None)
Quarter: 2010Q4

REPORT INFORMATION
  Report Type: 
  Country: None (occurrence: None)
  Receive Date: 20101029
  Receipt Date: 20101029
  Transmission Date: 20110411
  Serious: No
  Sender: FDA-Public Use
  Company Number: None

PATIENT
  Age: 61 Year
  Sex: Female

DRUGS (1)
  1. FINASTERIDE [Suspect]
     Indication: BENIGN PROSTATIC HYPERPLASIA
     Dosage: 5 MG QD PO SPRING 2010
     Route: 048
     Dates: start: 20100101

REACTIONS (2)
  - PRODUCT SUBSTITUTION ISSUE [None]
  - TESTICULAR PAIN [None]
